FAERS Safety Report 5286471-X (Version None)
Quarter: 2007Q1

REPORT INFORMATION
  Report Type: 
  Country: None (occurrence: None)
  Receive Date: 20070116
  Receipt Date: 20061024
  Transmission Date: 20070707
  Serious: No
  Sender: FDA-Public Use
  Company Number: 2006SP003812

PATIENT
  Age: 45 Year
  Sex: Female
  Weight: 49.8957 kg

DRUGS (5)
  1. LUNESTA [Suspect]
     Indication: INSOMNIA
     Dosage: 3 MG;HS;ORAL
     Route: 048
     Dates: start: 20060901
  2. LITHIUM CARBONATE [Concomitant]
  3. CALCIUM [Concomitant]
  4. VITAMIN CAP [Concomitant]
  5. OMEGA 3 [Concomitant]

REACTIONS (5)
  - ALOPECIA [None]
  - DRUG INEFFECTIVE [None]
  - DYSGEUSIA [None]
  - HEADACHE [None]
  - MIDDLE INSOMNIA [None]
